FAERS Safety Report 8445989-9 (Version None)
Quarter: 2012Q2

REPORT INFORMATION
  Report Type: 
  Country: None (occurrence: None)
  Receive Date: 20120323
  Receipt Date: 20110901
  Transmission Date: 20120825
  Serious: Yes (Hospitalization)
  Sender: FDA-Public Use
  Company Number: 163-21880-11090598

PATIENT
  Age: 90 Year
  Sex: Female

DRUGS (5)
  1. LOPID [Concomitant]
  2. REVLIMID [Suspect]
     Indication: MULTIPLE MYELOMA
     Dosage: 10 MG, DAILY X 21 DAYS, PO
     Route: 048
     Dates: start: 20110301, end: 20110601
  3. GABAPENTIN [Concomitant]
  4. CYMBALTA [Concomitant]
  5. TRILEPTAL [Concomitant]

REACTIONS (1)
  - SEPSIS [None]
